FAERS Safety Report 24569968 (Version 1)
Quarter: 2024Q4

REPORT INFORMATION
  Report Type: Spontaneous
  Country: CN (occurrence: CN)
  Receive Date: 20241031
  Receipt Date: 20241031
  Transmission Date: 20250114
  Serious: Yes (Other)
  Sender: AMGEN
  Company Number: CN-AMGEN-CHNSP2024212753

PATIENT
  Age: 53 Year
  Sex: Female
  Weight: 42 kg

DRUGS (1)
  1. XGEVA [Suspect]
     Active Substance: DENOSUMAB
     Indication: Resorption bone increased
     Dosage: 120 MILLIGRAM (1Q)
     Route: 040
     Dates: start: 20240627, end: 20240627

REACTIONS (2)
  - Jaw fistula [Recovering/Resolving]
  - Osteonecrosis of jaw [Recovering/Resolving]

NARRATIVE: CASE EVENT DATE: 20240907
